FAERS Safety Report 6302133-1 (Version None)
Quarter: 2009Q3

REPORT INFORMATION
  Report Type: 
  Country: None (occurrence: None)
  Receive Date: 20090807
  Receipt Date: 20090804
  Transmission Date: 20100115
  Serious: Yes (Hospitalization)
  Sender: FDA-Public Use
  Company Number: US-GENENTECH-287896

PATIENT
  Age: 73 Year
  Sex: Male
  Weight: 72 kg

DRUGS (6)
  1. ERLOTINIB [Suspect]
     Indication: LUNG ADENOCARCINOMA
     Dosage: 150 MG, QD
     Route: 048
     Dates: start: 20080515
  2. BEVACIZUMAB [Suspect]
     Indication: LUNG ADENOCARCINOMA
     Dosage: 15 MG/KG, Q21D
     Route: 042
     Dates: start: 20080515
  3. AVELOX [Concomitant]
     Indication: DRUG USE FOR UNKNOWN INDICATION
     Dosage: 400 MG, QD
  4. ASPIRIN [Concomitant]
     Indication: DRUG USE FOR UNKNOWN INDICATION
     Dosage: 81 MG, QD
     Route: 048
  5. FLONASE [Concomitant]
     Indication: DRUG USE FOR UNKNOWN INDICATION
     Dosage: 2 PUFF, UNK
     Route: 045
  6. ULTRAM [Concomitant]
     Indication: PAIN
     Dosage: 50 MG, PRN

REACTIONS (6)
  - CONFUSIONAL STATE [None]
  - FATIGUE [None]
  - GASTRIC HAEMORRHAGE [None]
  - NEUROPATHY PERIPHERAL [None]
  - PNEUMONIA [None]
  - SYNCOPE [None]
